FAERS Safety Report 7319698-3 (Version None)
Quarter: 2011Q1

REPORT INFORMATION
  Report Type: 
  Country: None (occurrence: None)
  Receive Date: 20110228
  Receipt Date: 20100805
  Transmission Date: 20110831
  Serious: No
  Sender: FDA-Public Use
  Company Number: A0874224A

PATIENT
  Age: 53 Year
  Sex: Female

DRUGS (2)
  1. LAMICTAL [Suspect]
     Dosage: 200MG PER DAY
     Route: 048
     Dates: start: 20090101, end: 20090901
  2. NO CONCURRENT MEDICATION [Concomitant]

REACTIONS (4)
  - SKIN INJURY [None]
  - RASH [None]
  - ALOPECIA [None]
  - HAIR DISORDER [None]
